FAERS Safety Report 23519073 (Version 1)
Quarter: 2024Q1

REPORT INFORMATION
  Report Type: Report from Study
  Country: DE (occurrence: DE)
  Receive Date: 20240213
  Receipt Date: 20240213
  Transmission Date: 20240410
  Serious: Yes (Other)
  Sender: FDA-Public Use
  Company Number: DE-ABBVIE-5632894

PATIENT
  Age: 60 Year
  Sex: Female

DRUGS (1)
  1. HUMIRA [Suspect]
     Active Substance: ADALIMUMAB
     Indication: Crohn^s disease
     Dosage: FORM STRENGTH: 40 MG
     Route: 058
     Dates: start: 20140301

REACTIONS (9)
  - Sudden hearing loss [Not Recovered/Not Resolved]
  - Hypertension [Recovering/Resolving]
  - Otitis media [Recovered/Resolved]
  - Illness [Recovering/Resolving]
  - Coronavirus infection [Recovered/Resolved]
  - Angiopathy [Not Recovered/Not Resolved]
  - Bronchitis [Recovered/Resolved]
  - Blood test abnormal [Recovering/Resolving]
  - Blood cholesterol increased [Not Recovered/Not Resolved]

NARRATIVE: CASE EVENT DATE: 20221201
